FAERS Safety Report 16107277 (Version 1)
Quarter: 2019Q1

REPORT INFORMATION
  Report Type: Spontaneous
  Country: JP (occurrence: JP)
  Receive Date: 20190322
  Receipt Date: 20190322
  Transmission Date: 20190418
  Serious: Yes (Other)
  Sender: FDA-Public Use
  Company Number: JP-PFIZER INC-2019052052

PATIENT
  Age: 84 Year
  Sex: Female

DRUGS (4)
  1. CELECOXIB. [Suspect]
     Active Substance: CELECOXIB
     Indication: LUMBAR SPINAL STENOSIS
     Dosage: 200 MG, 1X/DAY
     Route: 048
  2. ADALAT [Concomitant]
     Active Substance: NIFEDIPINE
     Dosage: UNK, UNKNOWN FREQ.
     Route: 048
  3. TAKEPRON [Concomitant]
     Active Substance: LANSOPRAZOLE
     Dosage: UNK, UNKNOWN FREQ.
     Route: 048
  4. PREDNISOLONE. [Concomitant]
     Active Substance: PREDNISOLONE
     Indication: DRUG ERUPTION
     Dosage: 0.5 MG/KG/DAY, UNKNOWN FREQ.
     Route: 065

REACTIONS (2)
  - Fixed eruption [Recovered/Resolved]
  - Stevens-Johnson syndrome [Recovered/Resolved]
